FAERS Safety Report 23325909 (Version 1)
Quarter: 2023Q4

REPORT INFORMATION
  Report Type: Spontaneous
  Country: US (occurrence: US)
  Receive Date: 20231221
  Receipt Date: 20231221
  Transmission Date: 20240110
  Serious: Yes (Other)
  Sender: FDA-Public Use
  Company Number: US-JNJFOC-20231235105

PATIENT

DRUGS (1)
  1. IMBRUVICA [Suspect]
     Active Substance: IBRUTINIB
     Indication: Lymphocytic lymphoma
     Route: 048

REACTIONS (15)
  - Atrial fibrillation [Unknown]
  - Pancytopenia [Unknown]
  - Neutropenia [Unknown]
  - Diarrhoea [Unknown]
  - Abdominal pain [Unknown]
  - Rash [Unknown]
  - Pneumonia [Unknown]
  - Cardiac failure [Unknown]
  - Anaemia [Unknown]
  - Hypertension [Unknown]
  - Myocardial ischaemia [Unknown]
  - Thrombocytopenia [Unknown]
  - Febrile neutropenia [Unknown]
  - Musculoskeletal pain [Unknown]
  - Cardiomyopathy [Unknown]
